FAERS Safety Report 23784292 (Version 1)
Quarter: 2024Q2

REPORT INFORMATION
  Report Type: Spontaneous
  Country: US (occurrence: US)
  Receive Date: 20240425
  Receipt Date: 20240425
  Transmission Date: 20240716
  Serious: No
  Sender: FDA-Public Use
  Company Number: US-Kiniksa Pharmaceuticals Ltd.-2023KPU001038

PATIENT
  Age: 68 Year
  Sex: Male

DRUGS (2)
  1. ARCALYST [Suspect]
     Active Substance: RILONACEPT
     Indication: Pericarditis constrictive
     Route: 058
     Dates: start: 20220501
  2. ARCALYST [Suspect]
     Active Substance: RILONACEPT
     Indication: Pericarditis

REACTIONS (2)
  - Serum ferritin decreased [Unknown]
  - Blood iron decreased [Unknown]
